FAERS Safety Report 6730760-6 (Version None)
Quarter: 2010Q2

REPORT INFORMATION
  Report Type: 
  Country: None (occurrence: None)
  Receive Date: 20100518
  Receipt Date: 20100511
  Transmission Date: 20101027
  Serious: Yes (Other)
  Sender: FDA-Public Use
  Company Number: JP-BAYER-201021747GPV

PATIENT
  Age: 24 Year
  Sex: Female

DRUGS (4)
  1. FLUDARABINE [Suspect]
     Indication: STEM CELL TRANSPLANT
     Route: 065
  2. MELPHALAN HYDROCHLORIDE [Concomitant]
     Indication: STEM CELL TRANSPLANT
     Route: 065
  3. CYCLOSPORINE [Concomitant]
     Indication: PROPHYLAXIS AGAINST GRAFT VERSUS HOST DISEASE
     Route: 065
  4. METHOTREXATE [Concomitant]
     Indication: PROPHYLAXIS AGAINST GRAFT VERSUS HOST DISEASE
     Dosage: SHORT-TERM METHOTREXATE
     Route: 065

REACTIONS (4)
  - ACUTE GRAFT VERSUS HOST DISEASE IN SKIN [None]
  - DISSEMINATED INTRAVASCULAR COAGULATION [None]
  - MICROANGIOPATHY [None]
  - STAPHYLOCOCCAL SEPSIS [None]
